FAERS Safety Report 17924646 (Version 2)
Quarter: 2020Q2

REPORT INFORMATION
  Report Type: Spontaneous
  Country: ES (occurrence: ES)
  Receive Date: 20200622
  Receipt Date: 20200623
  Transmission Date: 20200714
  Serious: Yes (Other)
  Sender: FDA-Public Use
  Company Number: ES-GILEAD-2020-0474415

PATIENT
  Age: 63 Year
  Sex: Female

DRUGS (3)
  1. RANEXA [Suspect]
     Active Substance: RANOLAZINE
     Indication: PRINZMETAL ANGINA
     Dosage: 375 MG, QD
     Route: 065
     Dates: start: 20200610
  2. DILTIAZEM. [Concomitant]
     Active Substance: DILTIAZEM
  3. RANEXA [Suspect]
     Active Substance: RANOLAZINE
     Dosage: 375 MG, BID
     Route: 065
     Dates: start: 2019

REACTIONS (2)
  - Amnesia [Not Recovered/Not Resolved]
  - Dizziness [Unknown]

NARRATIVE: CASE EVENT DATE: 2019
